FAERS Safety Report 21700809 (Version 1)
Quarter: 2022Q4

REPORT INFORMATION
  Report Type: Spontaneous
  Country: US (occurrence: US)
  Receive Date: 20221208
  Receipt Date: 20221208
  Transmission Date: 20230112
  Serious: Yes (Hospitalization)
  Sender: FDA-Public Use
  Company Number: US-MYLANLABS-2022M1136554

PATIENT
  Age: 73 Year
  Sex: Male

DRUGS (1)
  1. MAGNESIUM SULFATE [Suspect]
     Active Substance: MAGNESIUM SULFATE
     Indication: Constipation
     Dosage: UNK UNK, QD, INITIALLY HE WAS TAKING TWO TABLESPOONS DAILY AND SUBSEQUENTLY DOUBLED THE DOSE
     Route: 048

REACTIONS (2)
  - Hypermagnesaemia [Recovered/Resolved]
  - Off label use [Unknown]
